FAERS Safety Report 10129235 (Version 2)
Quarter: 2014Q2

REPORT INFORMATION
  Report Type: Other
  Country: US (occurrence: US)
  Receive Date: 20140428
  Receipt Date: 20140612
  Transmission Date: 20141212
  Serious: Yes (Other)
  Sender: FDA-Public Use
  Company Number: US-GSKPPD-2014GSK032770

PATIENT
  Age: 58 Year
  Sex: Female
  Weight: 82.63 kg

DRUGS (1)
  1. AVANDIA [Suspect]
     Indication: DIABETES MELLITUS
     Route: 048
     Dates: start: 20000725, end: 20050314

REACTIONS (2)
  - Liver injury [None]
  - Cardiac failure congestive [None]
